FAERS Safety Report 19648666 (Version 3)
Quarter: 2021Q3

REPORT INFORMATION
  Report Type: Spontaneous
  Country: FR (occurrence: FR)
  Receive Date: 20210803
  Receipt Date: 20210910
  Transmission Date: 20211014
  Serious: Yes (Other)
  Sender: FDA-Public Use
  Company Number: FR-ALIMERA SCIENCES INC.-FR-A16013-21-000162

PATIENT

DRUGS (1)
  1. ILUVIEN [Suspect]
     Active Substance: FLUOCINOLONE ACETONIDE
     Indication: DIABETIC RETINAL OEDEMA
     Dosage: 0.25 MICROGRAM, QD ? UNKNOWN EYE
     Route: 031
     Dates: start: 20210721

REACTIONS (3)
  - Eye haematoma [Unknown]
  - Device failure [Unknown]
  - Needle issue [Unknown]

NARRATIVE: CASE EVENT DATE: 20210721
